FAERS Safety Report 25650219 (Version 1)
Quarter: 2025Q3

REPORT INFORMATION
  Report Type: Spontaneous
  Country: US (occurrence: US)
  Receive Date: 20250806
  Receipt Date: 20250806
  Transmission Date: 20251020
  Serious: Yes (Other)
  Sender: NOVO NORDISK
  Company Number: US-NOVOPROD-1491887

PATIENT
  Age: 27 Year

DRUGS (2)
  1. SAXENDA [Suspect]
     Active Substance: LIRAGLUTIDE
     Indication: Weight control
  2. SAXENDA [Suspect]
     Active Substance: LIRAGLUTIDE
     Indication: Type 2 diabetes mellitus
     Dates: start: 202212, end: 202304

REACTIONS (3)
  - Intestinal obstruction [Not Recovered/Not Resolved]
  - Ileus [Not Recovered/Not Resolved]
  - Emotional distress [Not Recovered/Not Resolved]
